FAERS Safety Report 5396858-2 (Version None)
Quarter: 2007Q3

REPORT INFORMATION
  Report Type: 
  Country: None (occurrence: None)
  Receive Date: 20070723
  Receipt Date: 20070711
  Transmission Date: 20080115
  Serious: Yes (Other)
  Sender: FDA-Public Use
  Company Number: 26817

PATIENT
  Age: 80 Year

DRUGS (2)
  1. NIASPAN [Suspect]
  2. NIACIN [Concomitant]

REACTIONS (1)
  - MYOPATHY [None]
